FAERS Safety Report 20330030 (Version 2)
Quarter: 2022Q1

REPORT INFORMATION
  Report Type: Spontaneous
  Country: GB (occurrence: GB)
  Receive Date: 20220113
  Receipt Date: 20220124
  Transmission Date: 20220424
  Serious: Yes (Congenital Anomaly)
  Sender: FDA-Public Use
  Company Number: GB-002147023-NVSC2021GB294767

PATIENT
  Age: 1 Year
  Sex: Male
  Weight: 2.915 kg

DRUGS (6)
  1. TENOFOVIR DISOPROXIL [Suspect]
     Active Substance: TENOFOVIR DISOPROXIL
     Indication: Product used for unknown indication
     Dosage: 1 DOSAGE FORM, ONCE A DAY(QD (TABS/CAPS)
     Route: 064
     Dates: start: 20191028
  2. TENOFOVIR DISOPROXIL [Suspect]
     Active Substance: TENOFOVIR DISOPROXIL
     Indication: Foetal exposure during pregnancy
  3. ATAZANAVIR [Suspect]
     Active Substance: ATAZANAVIR
     Indication: Product used for unknown indication
     Dosage: MATERNAL DOSE: 1 DOSAGE FORM, QD (TABS/CAPS)
     Route: 064
     Dates: start: 20190828
  4. ATAZANAVIR [Suspect]
     Active Substance: ATAZANAVIR
     Indication: Foetal exposure during pregnancy
  5. RITONAVIR [Suspect]
     Active Substance: RITONAVIR
     Indication: Product used for unknown indication
     Dosage: MATERNAL DOSE: 1 DOSAGE FORM, QD (TABS/CAPS)
     Route: 064
     Dates: start: 20191028
  6. RITONAVIR [Suspect]
     Active Substance: RITONAVIR
     Indication: Foetal exposure during pregnancy

REACTIONS (7)
  - Foetal chromosome abnormality [Unknown]
  - Craniofacial deformity [Unknown]
  - Trisomy 21 [Unknown]
  - Nystagmus [Unknown]
  - Oedema [Unknown]
  - Ultrasound antenatal screen [Unknown]
  - Foetal exposure during pregnancy [Unknown]
